FAERS Safety Report 10560064 (Version 2)
Quarter: 2014Q4

REPORT INFORMATION
  Report Type: Spontaneous
  Country: US (occurrence: US)
  Receive Date: 20141103
  Receipt Date: 20141106
  Transmission Date: 20150529
  Serious: Yes (Other)
  Sender: FDA-Public Use
  Company Number: CHPA2014US014419

PATIENT
  Age: 75 Year
  Sex: Female

DRUGS (4)
  1. ASCRIPTIN BUFFERED MAX STRENGTH CAPLETS [Suspect]
     Active Substance: ASPIRIN
     Indication: INFLAMMATION
     Dosage: 1 DF, UNK
     Route: 048
     Dates: start: 20141024, end: 20141024
  2. ASCRIPTIN BUFFERED MAX STRENGTH CAPLETS [Suspect]
     Active Substance: ASPIRIN
     Indication: MUSCLE STRAIN
     Dosage: UNK
     Route: 065
     Dates: start: 201410
  3. ASCRIPTIN BUFFERED MAX STRENGTH CAPLETS [Suspect]
     Active Substance: ASPIRIN
     Indication: OFF LABEL USE
  4. ASCRIPTIN BUFFERED MAX STRENGTH CAPLETS [Suspect]
     Active Substance: ASPIRIN
     Indication: BACK PAIN
     Dosage: UNK
     Route: 048
     Dates: end: 2011

REACTIONS (6)
  - Lung neoplasm malignant [Recovered/Resolved]
  - Expired product administered [Unknown]
  - Eye disorder [Unknown]
  - Muscle strain [Unknown]
  - Therapeutic response unexpected [Unknown]
  - Nodule [Unknown]

NARRATIVE: CASE EVENT DATE: 2007
